FAERS Safety Report 23527895 (Version 1)
Quarter: 2024Q1

REPORT INFORMATION
  Report Type: Spontaneous
  Country: CN (occurrence: CN)
  Receive Date: 20240215
  Receipt Date: 20240215
  Transmission Date: 20240410
  Serious: Yes (Other)
  Sender: FDA-Public Use
  Company Number: CN-BRISTOL-MYERS SQUIBB COMPANY-2024-020832

PATIENT
  Sex: Male
  Weight: 56 kg

DRUGS (6)
  1. REBLOZYL [Suspect]
     Active Substance: LUSPATERCEPT-AAMT
     Indication: Thalassaemia beta
     Dosage: (3 BOTTLES OF 25MG REBLOZYL)
     Dates: start: 20230505
  2. REBLOZYL [Suspect]
     Active Substance: LUSPATERCEPT-AAMT
     Dosage: 4 BOTTLES OF 25MG REBLOZYL
     Dates: start: 20230928
  3. REBLOZYL [Suspect]
     Active Substance: LUSPATERCEPT-AAMT
  4. FEBUXOSTAT [Concomitant]
     Active Substance: FEBUXOSTAT
     Indication: Product used for unknown indication
  5. PROPRANOLOL [Concomitant]
     Active Substance: PROPRANOLOL HYDROCHLORIDE
     Indication: Product used for unknown indication
  6. ORYZANOL [Concomitant]
     Active Substance: GAMMA ORYZANOL
     Indication: Product used for unknown indication

REACTIONS (11)
  - Drug ineffective [Not Recovered/Not Resolved]
  - Haemoglobin decreased [Unknown]
  - Tinnitus [Unknown]
  - Cataract [Unknown]
  - Dizziness [Unknown]
  - Pelvic pain [Unknown]
  - Ulcer [Unknown]
  - Infection [Unknown]
  - Extramedullary haemopoiesis [Unknown]
  - COVID-19 [Unknown]
  - Prescribed overdose [Unknown]

NARRATIVE: CASE EVENT DATE: 20230101
